FAERS Safety Report 7003674-4 (Version None)
Quarter: 2010Q3

REPORT INFORMATION
  Report Type: 
  Country: None (occurrence: None)
  Receive Date: 20100920
  Receipt Date: 20090902
  Transmission Date: 20110219
  Serious: No
  Sender: FDA-Public Use
  Company Number: US-WYE-H10122809

PATIENT
  Sex: Male
  Weight: 74.46 kg

DRUGS (3)
  1. PROTONIX [Suspect]
     Indication: GASTROOESOPHAGEAL REFLUX DISEASE
     Route: 048
  2. CALCIUM [Concomitant]
  3. RHINOCORT [Concomitant]

REACTIONS (1)
  - OSTEOPENIA [None]
